FAERS Safety Report 8463903 (Version 3)
Quarter: 2013Q2

REPORT INFORMATION
  Report Type: Spontaneous
  Country: US (occurrence: US)
  Receive Date: 20120316
  Receipt Date: 20120502
  Transmission Date: 20140414
  Serious: Yes (Other)
  Sender: FDA-Public Use
  Company Number: PHEH2011US011269

PATIENT
  Sex: Female

DRUGS (3)
  1. RECLAST [Suspect]
     Route: 042
     Dates: start: 201012
  2. CELEBREX [Concomitant]
     Dosage: UNK UKN, UNK
  3. ANTIBIOTICS [Concomitant]
     Dosage: UNK UKN, UNK

REACTIONS (4)
  - OSTEONECROSIS OF JAW [Unknown]
  - NEURALGIA [Unknown]
  - PAIN IN JAW [Unknown]
  - TOOTHACHE [Unknown]
